FAERS Safety Report 18395298 (Version 6)
Quarter: 2022Q2

REPORT INFORMATION
  Report Type: Spontaneous
  Country: US (occurrence: US)
  Receive Date: 20201017
  Receipt Date: 20220625
  Transmission Date: 20220721
  Serious: Yes (Hospitalization, Other)
  Sender: FDA-Public Use
  Company Number: US-UNITED THERAPEUTICS-UNT-2020-015762

PATIENT
  Sex: Female
  Weight: 92.971 kg

DRUGS (11)
  1. TYVASO [Interacting]
     Active Substance: TREPROSTINIL
     Indication: Pulmonary arterial hypertension
     Dosage: UNK
     Dates: start: 20200203
  2. TYVASO [Interacting]
     Active Substance: TREPROSTINIL
     Dosage: 18-54 ?G, QID
  3. TYVASO [Interacting]
     Active Substance: TREPROSTINIL
     Dosage: UNK
  4. TYVASO [Interacting]
     Active Substance: TREPROSTINIL
     Dosage: UNK
  5. TYVASO [Interacting]
     Active Substance: TREPROSTINIL
     Dosage: UNK
  6. TYVASO [Interacting]
     Active Substance: TREPROSTINIL
     Dosage: UNK
  7. UPTRAVI [Suspect]
     Active Substance: SELEXIPAG
     Indication: Product used for unknown indication
     Dosage: UNK
     Route: 065
     Dates: end: 2020
  8. REVATIO [Suspect]
     Active Substance: SILDENAFIL CITRATE
     Indication: Product used for unknown indication
     Dosage: UNK
     Route: 065
  9. COUMADIN [Concomitant]
     Active Substance: WARFARIN SODIUM
     Indication: Product used for unknown indication
     Dosage: UNK
     Route: 065
  10. LETAIRIS [Concomitant]
     Active Substance: AMBRISENTAN
     Indication: Product used for unknown indication
     Dosage: UNK
     Route: 065
  11. DILTIAZEM [Concomitant]
     Active Substance: DILTIAZEM
     Indication: Product used for unknown indication
     Dosage: UNK
     Route: 065

REACTIONS (17)
  - COVID-19 [Unknown]
  - Back pain [Unknown]
  - Nervousness [Unknown]
  - Blood pressure increased [Unknown]
  - Palpitations [Unknown]
  - Pain [Unknown]
  - Insomnia [Unknown]
  - Decreased appetite [Unknown]
  - Loss of personal independence in daily activities [Unknown]
  - Blood viscosity decreased [Unknown]
  - Weight decreased [Unknown]
  - Blood glucose abnormal [Unknown]
  - Anxiety [Unknown]
  - Migraine [Unknown]
  - Panic attack [Unknown]
  - Drug interaction [Unknown]
  - Depression [Unknown]

NARRATIVE: CASE EVENT DATE: 20200101
